FAERS Safety Report 9445282 (Version 1)
Quarter: 2013Q3

REPORT INFORMATION
  Report Type: Report from Study
  Country: US (occurrence: US)
  Receive Date: 20130807
  Receipt Date: 20130807
  Transmission Date: 20140515
  Serious: Yes (Hospitalization)
  Sender: FDA-Public Use
  Company Number: US-ROCHE-1255065

PATIENT
  Age: 50 Year
  Sex: Female
  Weight: 110 kg

DRUGS (21)
  1. BEVACIZUMAB [Suspect]
     Indication: LUNG NEOPLASM MALIGNANT
     Dosage: LAST DOSE OF 1650 MG ON 05/JUL/2013; 4 CYCLES OF INDUCTION THERAPY AND 29 CYCLES OF MAINTENANCE THER
     Route: 042
     Dates: start: 20110510
  2. CARBOPLATIN [Suspect]
     Indication: LUNG NEOPLASM MALIGNANT
     Dosage: 4 CYCLES OF INDUCTION THERAPY.
     Route: 065
     Dates: start: 20110510
  3. PEMETREXED [Suspect]
     Indication: LUNG NEOPLASM MALIGNANT
     Dosage: LAST DOSE OF  1150 MG ON 05/JUL/2013; 4 CYCLES OF INDUCTION THERAPY AND 29 CYCLE OF MAINTENANCE THER
     Route: 042
     Dates: start: 20110510
  4. DEXAMETHASONE [Concomitant]
     Dosage: THE DAY BEFORE, DAY OF AND DAY AFTER CHEMOTHERAPY BASELINE.
     Route: 048
  5. THERATEARS NUTRITION OMEGA-3 [Concomitant]
     Route: 048
     Dates: start: 20120615
  6. MS CONTIN [Concomitant]
     Route: 048
  7. OXYCODONE [Concomitant]
     Dosage: EVERY 4-6HRS AS REQUIRED.
     Route: 048
  8. MUCINEX D [Concomitant]
     Dosage: 120/1200 MG EVERY 12 HRS AS REQUIRED.
     Route: 048
     Dates: start: 20120727
  9. ALBUTEROL [Concomitant]
     Dosage: EVERY 4 HRS AS REQUIRED.
     Route: 055
     Dates: start: 20120727
  10. VITAMIN B12 [Concomitant]
     Dosage: EVERY 9 WEEKS BASELINE
     Route: 030
  11. ZOFRAN [Concomitant]
     Dosage: EVERY 8 HRS AS REQUIRED.
     Route: 048
  12. NEXIUM [Concomitant]
     Route: 048
  13. FLEXERIL (UNITED STATES) [Concomitant]
     Dosage: EVERY 8 HRS AS REQUIRED.
     Route: 048
  14. ASPIRIN [Concomitant]
     Route: 048
  15. KLONOPIN [Concomitant]
     Dosage: EVERY HOUR
     Route: 048
  16. PHENERGAN [Concomitant]
     Dosage: EVERY 4-6 HRS AS REQUIRED
     Route: 048
  17. K-DUR [Concomitant]
     Route: 048
     Dates: start: 20121005
  18. CYMBALTA [Concomitant]
     Route: 048
     Dates: start: 20130422
  19. BIOTIN [Concomitant]
     Route: 048
  20. AVALIDE [Concomitant]
     Dosage: 300/12.5
     Route: 048
     Dates: start: 20121018
  21. LASIX [Concomitant]
     Route: 048
     Dates: start: 20121230

REACTIONS (2)
  - Pyelonephritis [Recovered/Resolved]
  - Systemic inflammatory response syndrome [Recovered/Resolved]
